FAERS Safety Report 5731142-6 (Version None)
Quarter: 2008Q2

REPORT INFORMATION
  Report Type: 
  Country: None (occurrence: None)
  Receive Date: 20080505
  Receipt Date: 20080421
  Transmission Date: 20081010
  Serious: Yes (Hospitalization)
  Sender: FDA-Public Use
  Company Number: 080422-0000288

PATIENT
  Age: 17 Year
  Sex: Male

DRUGS (4)
  1. ELSPAR [Suspect]
     Indication: ACUTE LYMPHOCYTIC LEUKAEMIA
  2. VINCRISTINE [Suspect]
     Indication: ACUTE LYMPHOCYTIC LEUKAEMIA
  3. DAUNORUBICN (DAUNORUBICN) [Suspect]
     Indication: ACUTE LYMPHOCYTIC LEUKAEMIA
  4. STEROIDS (NO PREF. NAME) [Suspect]
     Indication: ACUTE LYMPHOCYTIC LEUKAEMIA

REACTIONS (8)
  - ACANTHAMOEBA INFECTION [None]
  - ACUTE LYMPHOCYTIC LEUKAEMIA [None]
  - DIARRHOEA [None]
  - HEMIPARESIS [None]
  - JAUNDICE [None]
  - MALIGNANT NEOPLASM PROGRESSION [None]
  - MENINGOENCEPHALITIS AMOEBIC [None]
  - PARTIAL SEIZURES [None]
